FAERS Safety Report 9361110 (Version 2)
Quarter: 2013Q2

REPORT INFORMATION
  Report Type: Spontaneous
  Country: FR (occurrence: FR)
  Receive Date: 20130621
  Receipt Date: 20130628
  Transmission Date: 20140414
  Serious: Yes (Hospitalization)
  Sender: FDA-Public Use
  Company Number: FR-BAYER-2013-043572

PATIENT
  Age: 30 Year
  Sex: Female
  Weight: 54 kg

DRUGS (8)
  1. QLAIRA [Suspect]
     Indication: CONTRACEPTION
     Dosage: UNK
     Route: 048
  2. QUETIAPINE FUMARATE [Concomitant]
  3. NORSET [Concomitant]
  4. PARKINANE [Concomitant]
  5. CYMBALTA [Concomitant]
  6. MOGADON [Concomitant]
  7. SERESTA [Concomitant]
  8. TRANXENE [Concomitant]

REACTIONS (7)
  - Drug administration error [None]
  - Schizotypal personality disorder [Not Recovered/Not Resolved]
  - Abnormal behaviour [Not Recovered/Not Resolved]
  - Depression [Not Recovered/Not Resolved]
  - Suicidal ideation [Not Recovered/Not Resolved]
  - Decreased appetite [Not Recovered/Not Resolved]
  - Blood triglycerides increased [Recovered/Resolved]
